FAERS Safety Report 21166329 (Version 1)
Quarter: 2022Q3

REPORT INFORMATION
  Report Type: Spontaneous
  Country: US (occurrence: US)
  Receive Date: 20220803
  Receipt Date: 20220803
  Transmission Date: 20221026
  Serious: No
  Sender: FDA-Public Use
  Company Number: US-009507513-2207USA001894

PATIENT
  Age: 41 Year
  Sex: Male

DRUGS (2)
  1. KEYTRUDA [Suspect]
     Active Substance: PEMBROLIZUMAB
     Indication: Adenocarcinoma metastatic
     Dosage: UNK
  2. RELACORILANT [Concomitant]
     Active Substance: RELACORILANT
     Indication: Adenocarcinoma metastatic

REACTIONS (1)
  - Product use in unapproved indication [Unknown]
